FAERS Safety Report 9424829 (Version 3)
Quarter: 2013Q4

REPORT INFORMATION
  Report Type: Spontaneous
  Country: US (occurrence: US)
  Receive Date: 20130729
  Receipt Date: 20131030
  Transmission Date: 20140711
  Serious: No
  Sender: FDA-Public Use
  Company Number: US-PFIZER INC-2013217753

PATIENT
  Age: 71 Year
  Sex: Male

DRUGS (5)
  1. LYRICA [Suspect]
     Indication: POST HERPETIC NEURALGIA
     Dosage: 75 MG, UNK
     Route: 048
     Dates: start: 20120531, end: 20120729
  2. LYRICA [Suspect]
     Dosage: 200 MG, UNK
     Route: 048
     Dates: start: 20120730
  3. LYRICA [Suspect]
  4. METOPROLOL [Concomitant]
     Dosage: UNK
  5. BENAZEPRIL [Concomitant]
     Dosage: UNK

REACTIONS (2)
  - Product quality issue [Unknown]
  - Drug ineffective [Unknown]
